FAERS Safety Report 10039214 (Version 2)
Quarter: 2014Q2

REPORT INFORMATION
  Report Type: Report from Study
  Country: NL (occurrence: NL)
  Receive Date: 20140326
  Receipt Date: 20140408
  Transmission Date: 20141212
  Serious: Yes (Death, Other)
  Sender: FDA-Public Use
  Company Number: PHHY2014NL034747

PATIENT
  Sex: Male

DRUGS (12)
  1. ZOMETA [Suspect]
     Indication: PROSTATE CANCER METASTATIC
     Dosage: 4 MG PER 100 ML
     Route: 041
  2. ZOMETA [Suspect]
     Dosage: 4 MG PER 100 ML
     Route: 041
     Dates: start: 20120913
  3. ZOMETA [Suspect]
     Dosage: 4 MG PER 100 ML
     Route: 041
     Dates: start: 20140203
  4. ZOMETA [Suspect]
     Dosage: 4 MG PER 100 ML
     Route: 041
     Dates: start: 20140304
  5. DOCETAXEL [Concomitant]
     Dosage: 75 MG/ M2, EVERY 3 WEEKS
     Route: 042
  6. PERINDOPRIL TERT-BUTYLAMINE [Concomitant]
     Dosage: 4 MG, UNK
     Dates: start: 20120717
  7. ACETYLSALICYLIC ACID [Concomitant]
     Dosage: 80 MG, UNK
     Dates: start: 20120717
  8. SIMVASTATIN [Concomitant]
     Dosage: 40 MG, UNK
     Dates: start: 20120717
  9. AMLODIPINE [Concomitant]
     Dosage: 10 MG, UNK
  10. TAMSULOSINE [Concomitant]
     Dosage: 0.4 MG, UNK
     Dates: start: 20120418
  11. CETOMACROGOL [Concomitant]
     Dosage: UNK UKN, UNK
     Dates: start: 20120316
  12. PREDNISOLONE [Concomitant]
     Dosage: 2 MG, 2DD5
     Route: 048

REACTIONS (18)
  - Death [Fatal]
  - Hydronephrosis [Unknown]
  - Prostate cancer metastatic [Unknown]
  - Malignant neoplasm progression [Unknown]
  - Pollakiuria [Unknown]
  - Hepatic lesion [Unknown]
  - Weight decreased [Unknown]
  - Decreased appetite [Unknown]
  - Ageusia [Unknown]
  - Aphagia [Unknown]
  - Blood alkaline phosphatase increased [Unknown]
  - Prostatic specific antigen increased [Unknown]
  - Malaise [Unknown]
  - Fatigue [Unknown]
  - Abdominal pain [Unknown]
  - Constipation [Unknown]
  - Bone pain [Unknown]
  - Anaemia [Unknown]
